FAERS Safety Report 19369797 (Version 5)
Quarter: 2021Q3

REPORT INFORMATION
  Report Type: Spontaneous
  Country: FR (occurrence: FR)
  Receive Date: 20210603
  Receipt Date: 20210729
  Transmission Date: 20211014
  Serious: Yes (Life-Threatening, Other)
  Sender: FDA-Public Use
  Company Number: FR-PFIZER INC-2021623865

PATIENT
  Age: 35 Year
  Sex: Female

DRUGS (2)
  1. BROMAZEPAM [Suspect]
     Active Substance: BROMAZEPAM
     Dosage: UNK (INGESTION)
     Route: 048
  2. VENLAFAXINE HCL [Suspect]
     Active Substance: VENLAFAXINE HYDROCHLORIDE
     Dosage: UNK  (INGESTION)
     Route: 048

REACTIONS (6)
  - Toxicity to various agents [Unknown]
  - Hypoglycaemia [Recovering/Resolving]
  - Loss of consciousness [Unknown]
  - Suicide attempt [Unknown]
  - Coma [Unknown]
  - Overdose [Unknown]
